FAERS Safety Report 7810741-1 (Version None)
Quarter: 2011Q4

REPORT INFORMATION
  Report Type: 
  Country: None (occurrence: None)
  Receive Date: 20111011
  Receipt Date: 20110929
  Transmission Date: 20120403
  Serious: Yes (Life-Threatening, Other)
  Sender: FDA-Public Use
  Company Number: GB-ACCORD-010843

PATIENT
  Sex: Male
  Weight: 128 kg

DRUGS (6)
  1. CO-DYDRAMOL (CO-DYDRAMOL) [Concomitant]
  2. SIMVASTATIN [Suspect]
     Indication: HYPERCHOLESTEROLAEMIA
     Dosage: 40.00-MG/ ORAL
     Route: 048
     Dates: start: 20080814, end: 20110914
  3. RAMIPRIL [Concomitant]
  4. LIRAGLUTID (LIRAGLUTID) [Suspect]
     Indication: DIABETES MELLITUS
     Dosage: 12.00-MG / SUBCUTANEOUS
     Route: 058
     Dates: start: 20100408
  5. ASPIRIN [Concomitant]
  6. METFORMIN HCL [Concomitant]

REACTIONS (3)
  - MYOSITIS [None]
  - DRUG INTERACTION [None]
  - MUSCULOSKELETAL PAIN [None]
